FAERS Safety Report 7290649-3 (Version None)
Quarter: 2011Q1

REPORT INFORMATION
  Report Type: 
  Country: None (occurrence: None)
  Receive Date: 20110209
  Receipt Date: 20110209
  Transmission Date: 20110831
  Serious: No
  Sender: FDA-Public Use
  Company Number: None

PATIENT
  Age: 80 Year
  Sex: Male
  Weight: 81.6475 kg

DRUGS (1)
  1. ACETAZOLAMIDE [Suspect]
     Indication: GLAUCOMA
     Dosage: 250MGM TID PO
     Route: 048
     Dates: start: 20110110, end: 20110206

REACTIONS (5)
  - PERIPHERAL COLDNESS [None]
  - LETHARGY [None]
  - PARAESTHESIA [None]
  - CONFUSIONAL STATE [None]
  - HYPOAESTHESIA [None]
